FAERS Safety Report 6063366-5 (Version None)
Quarter: 2009Q1

REPORT INFORMATION
  Report Type: 
  Country: None (occurrence: None)
  Receive Date: 20090203
  Receipt Date: 20090128
  Transmission Date: 20090719
  Serious: Yes (Other)
  Sender: FDA-Public Use
  Company Number: JP-PFIZER INC-2009163337

PATIENT

DRUGS (3)
  1. SALAZOPYRIN [Suspect]
     Dosage: UNK
     Route: 049
     Dates: start: 20080101
  2. TAKEPRON [Concomitant]
     Dates: end: 20090123
  3. TAMSULOSIN HYDROCHLORIDE [Concomitant]
     Route: 048
     Dates: end: 20090123

REACTIONS (1)
  - BONE MARROW FAILURE [None]
